FAERS Safety Report 23503487 (Version 1)
Quarter: 2024Q1

REPORT INFORMATION
  Report Type: Report from Study
  Country: US (occurrence: US)
  Receive Date: 20240208
  Receipt Date: 20240208
  Transmission Date: 20240410
  Serious: Yes (Hospitalization)
  Sender: FDA-Public Use
  Company Number: US-ABBVIE-5626767

PATIENT
  Age: 80 Year
  Sex: Male

DRUGS (1)
  1. HUMIRA [Suspect]
     Active Substance: ADALIMUMAB
     Indication: Psoriatic arthropathy
     Dosage: CITRATE FREE FORM STRENGTH: 40 MILLIGRAM
     Route: 058
     Dates: start: 20230224, end: 20231204

REACTIONS (3)
  - Fatigue [Unknown]
  - Pneumonia [Unknown]
  - Vomiting [Unknown]

NARRATIVE: CASE EVENT DATE: 20240119
